FAERS Safety Report 16767834 (Version 2)
Quarter: 2019Q4

REPORT INFORMATION
  Report Type: Spontaneous
  Country: DE (occurrence: DE)
  Receive Date: 20190903
  Receipt Date: 20191004
  Transmission Date: 20200122
  Serious: Yes (Other)
  Sender: FDA-Public Use
  Company Number: DE-HETERO-HET2019DE01193

PATIENT
  Age: 7 Month
  Sex: Male
  Weight: 2 kg

DRUGS (16)
  1. LEVETIRACETAM. [Suspect]
     Active Substance: LEVETIRACETAM
     Dosage: (DOSE INCREASE) OFF LABEL USE FOR DOSE
     Route: 064
  2. LYRICA [Concomitant]
     Active Substance: PREGABALIN
     Dosage: 750 (150-150-150-300)  MG, QID
     Route: 064
  3. LEVETIRACETAM. [Suspect]
     Active Substance: LEVETIRACETAM
     Dosage: DOSE REDUCTION (750 MG X2): DAILY DOSE 1500 MG UNK
     Route: 064
  4. LACOSAMIDE. [Suspect]
     Active Substance: LACOSAMIDE
     Dosage: 100 MG, BID
     Route: 064
  5. LACOSAMIDE. [Suspect]
     Active Substance: LACOSAMIDE
     Dosage: 50 MG, BID
     Route: 064
  6. LYRICA [Concomitant]
     Active Substance: PREGABALIN
     Dosage: 750 MG,(150-150-150-300)
     Route: 063
  7. LACOSAMIDE. [Suspect]
     Active Substance: LACOSAMIDE
     Dosage: 100 MG, BID
     Route: 064
  8. LEVETIRACETAM. [Suspect]
     Active Substance: LEVETIRACETAM
     Indication: EPILEPSY
     Dosage: 1500-500-1500 (TOTAL: 3500 MG), 3X/DAY (TID)
     Route: 064
  9. LYRICA [Concomitant]
     Active Substance: PREGABALIN
     Dosage: 150-300-300 (TOTAL 750)
     Route: 064
  10. LYRICA [Concomitant]
     Active Substance: PREGABALIN
     Indication: NEUROPATHY PERIPHERAL
     Dosage: 750 MG,(150-300-300)
     Route: 064
  11. LEVETIRACETAM. [Suspect]
     Active Substance: LEVETIRACETAM
     Dosage: 1500 MG, BID (1500-0-1500, OFF LABEL USE FOR DOSE)
     Route: 064
  12. LEVETIRACETAM. [Suspect]
     Active Substance: LEVETIRACETAM
     Dosage: 3000 MG, BID, OFF LABEL USE FOR DOSE)
     Route: 064
  13. LACOSAMIDE. [Suspect]
     Active Substance: LACOSAMIDE
     Indication: EPILEPSY
     Dosage: 100 MG, QD
     Route: 064
  14. LEVETIRACETAM. [Suspect]
     Active Substance: LEVETIRACETAM
     Dosage: 750 MG, BID (OFF LABEL USE FOR DOSE)
     Route: 064
  15. LEVETIRACETAM. [Suspect]
     Active Substance: LEVETIRACETAM
     Dosage: 4X/DAY (QID) 1000-1000-500-1000
     Route: 064
  16. LEVETIRACETAM. [Suspect]
     Active Substance: LEVETIRACETAM
     Dosage: (DOSE INCREASE) OFF LABEL USE FOR DOSE
     Route: 063

REACTIONS (4)
  - Exposure via breast milk [Unknown]
  - Low birth weight baby [Unknown]
  - Foetal exposure during pregnancy [Unknown]
  - Premature baby [Unknown]

NARRATIVE: CASE EVENT DATE: 20141127
